FAERS Safety Report 22998617 (Version 2)
Quarter: 2024Q1

REPORT INFORMATION
  Report Type: Spontaneous
  Country: CA (occurrence: CA)
  Receive Date: 20230928
  Receipt Date: 20240301
  Transmission Date: 20240410
  Serious: Yes (Congenital Anomaly, Other)
  Sender: FDA-Public Use
  Company Number: CA-SA-2023SA290113

PATIENT
  Sex: Female

DRUGS (7)
  1. DUPILUMAB [Suspect]
     Active Substance: DUPILUMAB
     Indication: Foetal exposure during pregnancy
     Dosage: UNK
     Route: 064
  2. PREDNISONE [Suspect]
     Active Substance: PREDNISONE
     Indication: Foetal exposure during pregnancy
     Dosage: UNK
     Route: 064
  3. MIRTAZAPINE [Suspect]
     Active Substance: MIRTAZAPINE
     Indication: Foetal exposure during pregnancy
     Dosage: UNK
     Route: 064
  4. FLUTICASONE FUROATE [Suspect]
     Active Substance: FLUTICASONE FUROATE
     Indication: Foetal exposure during pregnancy
     Dosage: UNK
     Route: 064
  5. VILANTEROL [Suspect]
     Active Substance: VILANTEROL
     Indication: Foetal exposure during pregnancy
     Dosage: UNK
     Route: 064
  6. TIOTROPIUM [Suspect]
     Active Substance: TIOTROPIUM
     Indication: Foetal exposure during pregnancy
     Dosage: UNK
     Route: 064
  7. OMALIZUMAB [Suspect]
     Active Substance: OMALIZUMAB
     Indication: Foetal exposure during pregnancy
     Dosage: UNK
     Route: 064

REACTIONS (8)
  - Congenital hypogonadotropic hypogonadism [Unknown]
  - Cleft palate [Unknown]
  - Hypopituitarism [Unknown]
  - Hypothalamo-pituitary disorder [Unknown]
  - Pharyngeal disorder [Unknown]
  - Premature baby [Unknown]
  - Foetal exposure during pregnancy [Unknown]
  - Secondary hypogonadism [Unknown]
